FAERS Safety Report 13882007 (Version 3)
Quarter: 2017Q3

REPORT INFORMATION
  Report Type: Spontaneous
  Country: CN (occurrence: CN)
  Receive Date: 20170818
  Receipt Date: 20170830
  Transmission Date: 20171127
  Serious: Yes (Hospitalization, Other)
  Sender: FDA-Public Use
  Company Number: CN-ASTRAZENECA-2017SE76582

PATIENT
  Age: 80 Year
  Sex: Female
  Weight: 50 kg

DRUGS (8)
  1. AMLODIPINE BESYLATE. [Concomitant]
     Active Substance: AMLODIPINE BESYLATE
  2. GLICLAZIDE [Concomitant]
     Active Substance: GLICLAZIDE
  3. ONGLYZA [Suspect]
     Active Substance: SAXAGLIPTIN HYDROCHLORIDE
     Indication: TYPE 2 DIABETES MELLITUS
     Route: 048
     Dates: start: 20170525, end: 20170719
  4. PANCREATIC KININOGENASE [Concomitant]
  5. ACARBOSE. [Concomitant]
     Active Substance: ACARBOSE
  6. METHYLCOBALAMIN. [Concomitant]
     Active Substance: METHYLCOBALAMIN
  7. VOGLIBOSE [Concomitant]
     Active Substance: VOGLIBOSE
  8. HERBAL NOS [Concomitant]
     Active Substance: HERBALS

REACTIONS (7)
  - Face oedema [Recovered/Resolved]
  - Drug eruption [Recovering/Resolving]
  - Rash generalised [Unknown]
  - Pruritus [Recovering/Resolving]
  - Drug hypersensitivity [Unknown]
  - Rash papular [Recovering/Resolving]
  - Nephropathy [Unknown]

NARRATIVE: CASE EVENT DATE: 20170717
